FAERS Safety Report 16868260 (Version 1)
Quarter: 2019Q4

REPORT INFORMATION
  Report Type: Spontaneous
  Country: US (occurrence: US)
  Receive Date: 20190930
  Receipt Date: 20190930
  Transmission Date: 20200122
  Serious: Yes (Other)
  Sender: FDA-Public Use
  Company Number: None

PATIENT
  Age: 81 Year
  Sex: Female

DRUGS (5)
  1. ELIQUIS [Concomitant]
     Active Substance: APIXABAN
  2. METOPROLOL ER 25MG [Concomitant]
  3. LOSARTAN. [Suspect]
     Active Substance: LOSARTAN
     Indication: PROPHYLAXIS
     Route: 048
     Dates: start: 20190923, end: 20190930
  4. AMLODIPINE [Concomitant]
     Active Substance: AMLODIPINE BESYLATE
     Dates: start: 20170814
  5. DOFETILIDE 250MCG [Concomitant]
     Active Substance: DOFETILIDE
     Dates: start: 20190517

REACTIONS (4)
  - Blood pressure inadequately controlled [None]
  - Head discomfort [None]
  - Abdominal discomfort [None]
  - Product substitution issue [None]

NARRATIVE: CASE EVENT DATE: 20190930
